FAERS Safety Report 16700146 (Version 1)
Quarter: 2019Q3

REPORT INFORMATION
  Report Type: Spontaneous
  Country: SG (occurrence: SG)
  Receive Date: 20190813
  Receipt Date: 20190813
  Transmission Date: 20191004
  Serious: Yes (Other)
  Sender: FDA-Public Use
  Company Number: PHHY2019SG182929

PATIENT
  Age: 28 Year
  Sex: Male

DRUGS (1)
  1. DEXAMETHASONE. [Suspect]
     Active Substance: DEXAMETHASONE
     Indication: UVEITIS
     Dosage: UNK
     Route: 065

REACTIONS (1)
  - Intraocular pressure increased [Recovered/Resolved]
